FAERS Safety Report 9385776 (Version 4)
Quarter: 2013Q4

REPORT INFORMATION
  Report Type: Report from Study
  Country: CZ (occurrence: CZ)
  Receive Date: 20130705
  Receipt Date: 20131205
  Transmission Date: 20140711
  Serious: Yes (Hospitalization)
  Sender: FDA-Public Use
  Company Number: PHHO2013CZ008668

PATIENT
  Sex: 0

DRUGS (8)
  1. ACZ885 [Suspect]
     Indication: CARDIOVASCULAR EVENT PROPHYLAXIS
     Dosage: 150 MG, UNK
     Route: 058
     Dates: start: 20130612, end: 20130612
  2. BETALOC [Concomitant]
     Indication: CARDIAC FAILURE
     Dosage: 200 MG, 1/2-0-0
     Dates: start: 200412
  3. SIOFOR [Concomitant]
     Indication: DIABETES MELLITUS
     Dosage: 850 MG, 1-0-0
     Dates: start: 200412
  4. VEROSPIRON [Concomitant]
     Indication: CARDIAC FAILURE
     Dosage: 25 , 1-1-0
     Dates: start: 201105
  5. FURON [Concomitant]
     Indication: CARDIAC FAILURE
     Dosage: 40, 1/2-0-0
     Dates: start: 20130612
  6. CIPRALEX [Concomitant]
     Indication: DEPRESSION
     Dosage: 10,1-0-0
     Dates: start: 20130301
  7. WARFARIN [Concomitant]
     Indication: ATRIAL FIBRILLATION
     Dosage: 5, 0-1/2-0
     Dates: start: 201205
  8. SORTIS [Concomitant]
     Indication: DYSLIPIDAEMIA
     Dosage: 20MG 0-0-1
     Dates: start: 200412

REACTIONS (1)
  - Chronic obstructive pulmonary disease [Recovered/Resolved]
